FAERS Safety Report 14611655 (Version 1)
Quarter: 2018Q1

REPORT INFORMATION
  Report Type: Spontaneous
  Country: FR (occurrence: FR)
  Receive Date: 20180308
  Receipt Date: 20180308
  Transmission Date: 20180509
  Serious: Yes (Other)
  Sender: FDA-Public Use
  Company Number: FR-MERCK KGAA-2043253

PATIENT
  Sex: Female

DRUGS (1)
  1. NOVOTHYROX [Suspect]
     Active Substance: LEVOTHYROXINE SODIUM
     Indication: PRODUCT USED FOR UNKNOWN INDICATION

REACTIONS (19)
  - Fatigue [None]
  - Mental impairment [None]
  - Tachycardia [None]
  - Asthenia [None]
  - Verbal abuse [None]
  - Bone disorder [None]
  - Arthralgia [None]
  - Apathy [None]
  - Sense of oppression [None]
  - Social avoidant behaviour [None]
  - Myalgia [None]
  - Tremor [None]
  - Irritability [None]
  - Loss of personal independence in daily activities [None]
  - Somnolence [None]
  - Thyroid function test abnormal [None]
  - Aggression [None]
  - Tendon disorder [None]
  - Headache [None]
